FAERS Safety Report 10129560 (Version 1)
Quarter: 2014Q2

REPORT INFORMATION
  Report Type: Spontaneous
  Country: US (occurrence: US)
  Receive Date: 20140428
  Receipt Date: 20140428
  Transmission Date: 20141212
  Serious: No
  Sender: FDA-Public Use
  Company Number: US-PFIZER INC-2014112621

PATIENT
  Age: 44 Year
  Sex: Female

DRUGS (3)
  1. ERYTHROMYCIN [Suspect]
     Dosage: UNK
  2. TETRACYCLINE HCL [Suspect]
     Dosage: UNK
  3. TYLENOL [Suspect]
     Dosage: UNK

REACTIONS (4)
  - Drug hypersensitivity [Unknown]
  - Urticaria [Unknown]
  - Nausea [Unknown]
  - Vomiting [Unknown]
